FAERS Safety Report 5350374-2 (Version None)
Quarter: 2007Q2

REPORT INFORMATION
  Report Type: 
  Country: None (occurrence: None)
  Receive Date: 20070606
  Receipt Date: 20070606
  Transmission Date: 20071010
  Serious: Yes (Hospitalization)
  Sender: FDA-Public Use
  Company Number: None

PATIENT
  Sex: Female
  Weight: 56.6996 kg

DRUGS (2)
  1. GAMMAGARD [Suspect]
     Indication: POLYNEUROPATHY
     Dosage: 45 GM EVERY 3-4 DAYS IV DRIP
     Route: 041
     Dates: start: 20070510, end: 20070510
  2. GAMMAGARD LIQUID [Suspect]
     Indication: POLYNEUROPATHY
     Dosage: 45 GM EVERY 3-4 DAYS IV DRIP
     Route: 041
     Dates: start: 20070510, end: 20070510

REACTIONS (5)
  - BLOOD PRESSURE INCREASED [None]
  - DYSPNOEA [None]
  - HEADACHE [None]
  - NAUSEA [None]
  - TACHYCARDIA [None]
